FAERS Safety Report 6345386-6 (Version None)
Quarter: 2009Q3

REPORT INFORMATION
  Report Type: 
  Country: None (occurrence: None)
  Receive Date: 20090909
  Receipt Date: 20081027
  Transmission Date: 20100115
  Serious: No
  Sender: FDA-Public Use
  Company Number: US-TYCO HEALTHCARE/MALLINCKRODT-T200801793

PATIENT

DRUGS (1)
  1. SODIUM IODIDE I 131 [Suspect]
     Dosage: UNK, SINGLE
     Dates: start: 20081001, end: 20081001

REACTIONS (3)
  - AGEUSIA [None]
  - SENSORY DISTURBANCE [None]
  - TONGUE DISCOLOURATION [None]
